FAERS Safety Report 4343414-0 (Version None)
Quarter: 2004Q1

REPORT INFORMATION
  Report Type: 
  Country: None (occurrence: None)
  Receive Date: 20040325
  Receipt Date: 20040204
  Transmission Date: 20041129
  Serious: No
  Sender: FDA-Public Use
  Company Number: USA040156631

PATIENT
  Age: 61 Year
  Sex: Female

DRUGS (6)
  1. FORTEO [Suspect]
     Indication: OSTEOPOROSIS
     Dates: start: 20031201
  2. EVISTA [Concomitant]
  3. FOSAMAX [Concomitant]
  4. ACTONEL [Concomitant]
  5. ZETIA [Concomitant]
  6. LIPITOR [Concomitant]

REACTIONS (4)
  - DIZZINESS [None]
  - HEADACHE [None]
  - SENSATION OF HEAVINESS [None]
  - VISUAL DISTURBANCE [None]
